FAERS Safety Report 7010348-2 (Version None)
Quarter: 2010Q3

REPORT INFORMATION
  Report Type: 
  Country: None (occurrence: None)
  Receive Date: 20100923
  Receipt Date: 20100916
  Transmission Date: 20110219
  Serious: Yes (Other)
  Sender: FDA-Public Use
  Company Number: B0675853A

PATIENT
  Sex: Female

DRUGS (1)
  1. DERMOVATE [Suspect]
     Indication: HERPES ZOSTER
     Route: 065
     Dates: start: 20070101

REACTIONS (2)
  - CATARACT [None]
  - GLAUCOMA [None]
